FAERS Safety Report 8799305 (Version 1)
Quarter: 2012Q4

REPORT INFORMATION
  Report Type: 
  Country: US (occurrence: US)
  Receive Date: 20120919
  Receipt Date: 20120919
  Transmission Date: 20130627
  Serious: No
  Sender: FDA-Public Use
  Company Number: US-009507513-1208USA009844

PATIENT

DRUGS (3)
  1. JANUVIA [Suspect]
     Indication: DIABETES MELLITUS
     Dosage: 1 time daily
     Route: 048
     Dates: start: 20120721
  2. OXYCONTIN [Concomitant]
  3. METFORMIN [Concomitant]

REACTIONS (4)
  - Feeling jittery [Unknown]
  - Fatigue [Unknown]
  - Hyperglycaemia [Unknown]
  - Gastrointestinal motility disorder [Unknown]
